FAERS Safety Report 17202874 (Version 2)
Quarter: 2020Q1

REPORT INFORMATION
  Report Type: Spontaneous
  Country: JP (occurrence: JP)
  Receive Date: 20191226
  Receipt Date: 20200114
  Transmission Date: 20200409
  Serious: Yes (Hospitalization, Other)
  Sender: FDA-Public Use
  Company Number: JP-AMGEN-JPNSP2019213540

PATIENT

DRUGS (1)
  1. EVENITY [Suspect]
     Active Substance: ROMOSOZUMAB-AQQG
     Indication: PRODUCT USED FOR UNKNOWN INDICATION
     Dosage: 210 MILLIGRAM, QMO
     Route: 058
     Dates: start: 2019

REACTIONS (1)
  - Hospitalisation [Unknown]

NARRATIVE: CASE EVENT DATE: 2019
